FAERS Safety Report 11481212 (Version 1)
Quarter: 2015Q3

REPORT INFORMATION
  Report Type: Spontaneous
  Country: US (occurrence: US)
  Receive Date: 20150909
  Receipt Date: 20150909
  Transmission Date: 20151125
  Serious: No
  Sender: FDA-Public Use
  Company Number: US-009507513-1509USA004275

PATIENT
  Sex: Male

DRUGS (1)
  1. PROPECIA [Suspect]
     Active Substance: FINASTERIDE
     Indication: PRODUCT USED FOR UNKNOWN INDICATION
     Route: 048

REACTIONS (6)
  - Erectile dysfunction [Unknown]
  - Mental disorder [Unknown]
  - Loss of libido [Unknown]
  - Muscle atrophy [Unknown]
  - Semen volume decreased [Unknown]
  - Semen analysis abnormal [Unknown]
